FAERS Safety Report 10120269 (Version 2)
Quarter: 2014Q2

REPORT INFORMATION
  Report Type: Spontaneous
  Country: NL (occurrence: NL)
  Receive Date: 20140425
  Receipt Date: 20140620
  Transmission Date: 20141212
  Serious: Yes (Other)
  Sender: FDA-Public Use
  Company Number: NL-PFIZER INC-2014114472

PATIENT
  Age: 70 Year
  Sex: Male

DRUGS (9)
  1. LYRICA [Suspect]
     Indication: NEURALGIA
     Dosage: 300 MG, 2X/DAY
     Dates: start: 2013, end: 201404
  2. ACETYLSALICYLIC ACID [Concomitant]
     Dosage: 80 MG, 1X/DAY
  3. AMLODIPINE MALEATE [Concomitant]
     Dosage: 5 MG, 1X/DAY
  4. ENALAPRIL [Concomitant]
     Dosage: 20 MG, 1X/DAY
  5. METFORMIN HYDROCHLORIDE [Concomitant]
     Dosage: 1000 MG, 2X/DAY
  6. VALSARTAN [Concomitant]
     Dosage: 1 DF, 1X/DAY
  7. LEVEMIR [Concomitant]
  8. LEVITRA [Concomitant]
     Dosage: 10 MG, AS NEEDED
  9. NOVORAPID [Concomitant]

REACTIONS (3)
  - Muscle spasms [Recovered/Resolved]
  - Memory impairment [Recovered/Resolved]
  - Dementia Alzheimer^s type [Recovered/Resolved]
